FAERS Safety Report 10189918 (Version 1)
Quarter: 2014Q2

REPORT INFORMATION
  Report Type: Spontaneous
  Country: US (occurrence: US)
  Receive Date: 20140522
  Receipt Date: 20140522
  Transmission Date: 20141212
  Serious: Yes (Other)
  Sender: FDA-Public Use
  Company Number: US-SANOFI-AVENTIS-2013SA082073

PATIENT
  Age: 67 Year
  Sex: Male
  Weight: 104 kg

DRUGS (5)
  1. LANTUS SOLOSTAR [Suspect]
     Indication: TYPE 2 DIABETES MELLITUS
     Dosage: DOSE:65 UNIT(S)
     Route: 058
     Dates: start: 2007
  2. SOLOSTAR [Concomitant]
     Indication: TYPE 2 DIABETES MELLITUS
     Dates: start: 2007
  3. ATORVASTATIN [Concomitant]
     Indication: BLOOD CHOLESTEROL INCREASED
  4. AMLODIPINE [Concomitant]
     Indication: HYPERTENSION
  5. ASPIRIN [Concomitant]

REACTIONS (2)
  - Cataract [Unknown]
  - Visual acuity reduced [Unknown]
